FAERS Safety Report 18529599 (Version 2)
Quarter: 2020Q4

REPORT INFORMATION
  Report Type: Report from Study
  Country: CA (occurrence: CA)
  Receive Date: 20201120
  Receipt Date: 20201211
  Transmission Date: 20210114
  Serious: Yes (Other)
  Sender: FDA-Public Use
  Company Number: CA-TAKEDA-CA202021176

PATIENT
  Age: 44 Year
  Sex: Male
  Weight: 72 kg

DRUGS (3)
  1. VELAGLUCERASE ALFA [Suspect]
     Active Substance: VELAGLUCERASE ALFA
     Dosage: 45 U/KG, Q3WEEKS
     Route: 065
     Dates: start: 20190104
  2. CEREZYME [Concomitant]
     Active Substance: IMIGLUCERASE
     Dosage: UNK
     Dates: start: 20170801, end: 20181008
  3. VELAGLUCERASE ALFA [Suspect]
     Active Substance: VELAGLUCERASE ALFA
     Indication: GAUCHER^S DISEASE
     Dosage: 2000 UNITS ALTERNATING WITH 2400 UNITS IV EVERY OTHER WEEK
     Route: 042
     Dates: start: 20190104

REACTIONS (7)
  - Abdominal pain [Not Recovered/Not Resolved]
  - Bone pain [Not Recovered/Not Resolved]
  - Nausea [Not Recovered/Not Resolved]
  - Fatigue [Not Recovered/Not Resolved]
  - Inguinal hernia [Recovering/Resolving]
  - Weight fluctuation [Not Recovered/Not Resolved]
  - Weight decreased [Unknown]

NARRATIVE: CASE EVENT DATE: 20200624
